FAERS Safety Report 5110457-9 (Version None)
Quarter: 2006Q3

REPORT INFORMATION
  Report Type: 
  Country: None (occurrence: None)
  Receive Date: 20060918
  Receipt Date: 20060912
  Transmission Date: 20061208
  Serious: Yes (Other)
  Sender: FDA-Public Use
  Company Number: 235914K06USA

PATIENT
  Age: 45 Year
  Sex: Female

DRUGS (2)
  1. REBIF [Suspect]
     Indication: MULTIPLE SCLEROSIS
     Dosage: 44 MCG, 3 IN 1 WEEKS, SUBCUTANEOUS
     Route: 058
     Dates: start: 20060610, end: 20060828
  2. ADVIL [Concomitant]

REACTIONS (5)
  - ANAPHYLACTIC SHOCK [None]
  - CHEST DISCOMFORT [None]
  - HYPERTENSION [None]
  - TREMOR [None]
  - WHITE BLOOD CELL COUNT DECREASED [None]
